FAERS Safety Report 12373555 (Version 1)
Quarter: 2016Q2

REPORT INFORMATION
  Report Type: Report from Study
  Country: DE (occurrence: DE)
  Receive Date: 20160516
  Receipt Date: 20160516
  Transmission Date: 20160815
  Serious: Yes (Life-Threatening, Hospitalization)
  Sender: FDA-Public Use
  Company Number: PHHO2016DE007067

PATIENT
  Age: 65 Year
  Sex: Male
  Weight: 83 kg

DRUGS (5)
  1. AMN107 [Suspect]
     Active Substance: NILOTINIB
     Indication: CHRONIC MYELOID LEUKAEMIA
     Dosage: 300 MG, BID
     Route: 048
     Dates: start: 20140610, end: 20160509
  2. ACETYLSALICYLIC ACID [Concomitant]
     Active Substance: ASPIRIN
     Indication: HAEMODILUTION
     Dosage: 100 MG, QD
     Route: 048
     Dates: start: 20090701
  3. TAMSULOSIN [Concomitant]
     Active Substance: TAMSULOSIN
     Indication: BENIGN PROSTATIC HYPERPLASIA
     Dosage: 0.4 MG, QD
     Route: 048
  4. PRAVASTATIN [Concomitant]
     Active Substance: PRAVASTATIN\PRAVASTATIN SODIUM
     Indication: HYPERCHOLESTEROLAEMIA
     Dosage: 10 MG, QD
     Route: 048
     Dates: start: 20160212
  5. PEGINTERFERON ALFA-2B [Suspect]
     Active Substance: PEGINTERFERON ALFA-2B
     Indication: CHRONIC MYELOID LEUKAEMIA
     Dosage: 30 UG, QW
     Route: 058
     Dates: start: 20140723

REACTIONS (1)
  - Bowen^s disease [Not Recovered/Not Resolved]

NARRATIVE: CASE EVENT DATE: 20160211
